FAERS Safety Report 10099526 (Version 1)
Quarter: 2014Q2

REPORT INFORMATION
  Report Type: Spontaneous
  Country: US (occurrence: US)
  Receive Date: 20140423
  Receipt Date: 20140423
  Transmission Date: 20141212
  Serious: Yes (Other)
  Sender: FDA-Public Use
  Company Number: US-ASTRAZENECA-2014SE26891

PATIENT
  Sex: 0

DRUGS (2)
  1. SYMBICORT [Suspect]
     Route: 055
  2. OTHER MEDICATIONS [Concomitant]

REACTIONS (1)
  - Ophthalmoplegia [Unknown]
